FAERS Safety Report 7618312-7 (Version None)
Quarter: 2011Q3

REPORT INFORMATION
  Report Type: 
  Country: None (occurrence: None)
  Receive Date: 20110718
  Receipt Date: 20110708
  Transmission Date: 20111222
  Serious: Yes (Hospitalization, Other)
  Sender: FDA-Public Use
  Company Number: US-ROCHE-787925

PATIENT
  Sex: Female

DRUGS (1)
  1. AVASTIN [Suspect]
     Dosage: PATIENT RECEIVED 4 DOSES OF AVASTIN.
     Route: 065
     Dates: start: 20110407, end: 20110609

REACTIONS (11)
  - DYSARTHRIA [None]
  - BLOOD CREATININE INCREASED [None]
  - BLOOD UREA INCREASED [None]
  - DISORIENTATION [None]
  - HYPERTENSION [None]
  - MENTAL STATUS CHANGES [None]
  - COORDINATION ABNORMAL [None]
  - ASTHENIA [None]
  - CONFUSIONAL STATE [None]
  - MEMORY IMPAIRMENT [None]
  - DECREASED APPETITE [None]
